FAERS Safety Report 15022404 (Version 1)
Quarter: 2018Q2

REPORT INFORMATION
  Report Type: Report from Study
  Country: US (occurrence: US)
  Receive Date: 20180618
  Receipt Date: 20180618
  Transmission Date: 20180711
  Serious: Yes (Hospitalization, Other)
  Sender: FDA-Public Use
  Company Number: PHHO2018US003080

PATIENT
  Age: 62 Year
  Sex: Female
  Weight: 59.6 kg

DRUGS (4)
  1. KISQALI [Suspect]
     Active Substance: RIBOCICLIB
     Dosage: 250 MG, QD
     Route: 048
     Dates: end: 20180526
  2. KISQALI [Suspect]
     Active Substance: RIBOCICLIB
     Indication: LEIOMYOSARCOMA
     Dosage: 250 MG, QD
     Route: 048
     Dates: start: 20171221, end: 20180221
  3. AFINITOR [Suspect]
     Active Substance: EVEROLIMUS
     Indication: LEIOMYOSARCOMA
     Dosage: 2.5 MG, QD
     Route: 048
     Dates: start: 20171221, end: 20180221
  4. AFINITOR [Suspect]
     Active Substance: EVEROLIMUS
     Dosage: 2.5 MG, QD
     Route: 048
     Dates: end: 20180525

REACTIONS (4)
  - Hypertriglyceridaemia [Unknown]
  - Small intestinal obstruction [Unknown]
  - Diarrhoea [Unknown]
  - Clostridium difficile infection [Unknown]

NARRATIVE: CASE EVENT DATE: 20180218
